FAERS Safety Report 10305112 (Version 1)
Quarter: 2014Q3

REPORT INFORMATION
  Report Type: Spontaneous
  Country: US (occurrence: None)
  Receive Date: 20140711
  Receipt Date: 20140711
  Transmission Date: 20150326
  Serious: Yes (Other)
  Sender: FDA-Public Use
  Company Number: None

PATIENT
  Age: 65 Year
  Sex: Male
  Weight: 97.52 kg

DRUGS (7)
  1. ASPIRIN. [Concomitant]
     Active Substance: ASPIRIN
  2. VIT. D [Concomitant]
  3. COUMADIN [Concomitant]
     Active Substance: WARFARIN SODIUM
  4. METHYLCELLULOSE [Concomitant]
     Active Substance: METHYLCELLULOSES
  5. VESICARE [Suspect]
     Active Substance: SOLIFENACIN SUCCINATE
     Indication: MICTURITION URGENCY
     Dosage: BY MOUTH
     Dates: start: 20140612, end: 20140613
  6. MULTIVITAMIN K [Concomitant]
  7. DOCUSATE SODIUM. [Concomitant]
     Active Substance: DOCUSATE SODIUM

REACTIONS (3)
  - Heart rate irregular [None]
  - Middle insomnia [None]
  - Heart rate increased [None]

NARRATIVE: CASE EVENT DATE: 20140613
